FAERS Safety Report 23311284 (Version 2)
Quarter: 2024Q2

REPORT INFORMATION
  Report Type: Report from Study
  Country: US (occurrence: US)
  Receive Date: 20231219
  Receipt Date: 20240513
  Transmission Date: 20240715
  Serious: Yes (Other)
  Sender: FDA-Public Use
  Company Number: US-ABBVIE-5466661

PATIENT
  Sex: Female
  Weight: 89.811 kg

DRUGS (1)
  1. SKYRIZI [Suspect]
     Active Substance: RISANKIZUMAB-RZAA
     Indication: Psoriatic arthropathy
     Dosage: FREQUENCY TEXT: 12 WEEKS
     Route: 058
     Dates: start: 20220426

REACTIONS (3)
  - Precancerous skin lesion [Unknown]
  - Therapeutic product effect incomplete [Unknown]
  - Pruritus [Not Recovered/Not Resolved]

NARRATIVE: CASE EVENT DATE: 20230101
